FAERS Safety Report 8117308-9 (Version None)
Quarter: 2012Q1

REPORT INFORMATION
  Report Type: 
  Country: None (occurrence: None)
  Receive Date: 20120206
  Receipt Date: 20120124
  Transmission Date: 20120608
  Serious: Yes (Other)
  Sender: FDA-Public Use
  Company Number: US-ELI_LILLY_AND_COMPANY-US201111005411

PATIENT
  Sex: Female

DRUGS (6)
  1. PROAIR HFA [Concomitant]
     Dosage: 2 DF, PRN
     Dates: start: 20110720
  2. PRAVASTATIN [Concomitant]
     Dosage: 20 MG, QD
     Route: 048
     Dates: start: 20110621
  3. SINGULAIR [Concomitant]
     Dosage: 10 MG, QD
     Dates: start: 20110620
  4. PROAIR HFA [Concomitant]
     Dosage: 2 DF, BID
     Dates: start: 20110720
  5. FEXOFENADINE [Concomitant]
     Dosage: 180 MG, QD
     Route: 048
     Dates: start: 20110602
  6. BYETTA [Suspect]
     Indication: TYPE 2 DIABETES MELLITUS
     Dosage: 5 UG, BID
     Route: 058

REACTIONS (2)
  - BRADYCARDIA [None]
  - HEART RATE ABNORMAL [None]
